FAERS Safety Report 7996074-1 (Version None)
Quarter: 2011Q4

REPORT INFORMATION
  Report Type: 
  Country: None (occurrence: None)
  Receive Date: 20111220
  Receipt Date: 20111212
  Transmission Date: 20120403
  Serious: Yes (Other)
  Sender: FDA-Public Use
  Company Number: PHEH2011US011609

PATIENT
  Sex: Female

DRUGS (2)
  1. GLEEVEC [Suspect]
     Indication: GASTROINTESTINAL CARCINOMA
     Dosage: 600 MG, DAILY
     Route: 048
     Dates: start: 20111025
  2. ANTIBIOTICS [Concomitant]

REACTIONS (1)
  - CYSTITIS [None]
